FAERS Safety Report 21770934 (Version 1)
Quarter: 2022Q4

REPORT INFORMATION
  Report Type: Spontaneous
  Country: US (occurrence: None)
  Receive Date: 20221222
  Receipt Date: 20221222
  Transmission Date: 20230112
  Serious: Yes (Hospitalization)
  Sender: FDA-Public Use
  Company Number: None

PATIENT
  Age: 76 Year
  Sex: Female

DRUGS (2)
  1. OCTREOTIDE [Suspect]
     Active Substance: OCTREOTIDE
     Indication: Chronic kidney disease
     Dosage: INJECT 100 MCG (1 ML) UNTER THE SKIN TWICE DAILY   BID SUBCUTANEOUS?
     Route: 058
     Dates: start: 20221107
  2. OCTREOTIDE [Suspect]
     Active Substance: OCTREOTIDE
     Indication: Anaemia

REACTIONS (2)
  - Gastrointestinal haemorrhage [None]
  - Condition aggravated [None]

NARRATIVE: CASE EVENT DATE: 20221129
